FAERS Safety Report 17438337 (Version 3)
Quarter: 2020Q3

REPORT INFORMATION
  Report Type: Spontaneous
  Country: JP (occurrence: JP)
  Receive Date: 20200220
  Receipt Date: 20200720
  Transmission Date: 20201102
  Serious: Yes (Death, Other)
  Sender: FDA-Public Use
  Company Number: JP-AMGEN-JPNSP2020028172

PATIENT
  Age: 76 Year
  Sex: Female
  Weight: 30.5 kg

DRUGS (3)
  1. EDIROL [Concomitant]
     Active Substance: ELDECALCITOL
     Dosage: 0.75 MICROGRAM, QD
     Dates: start: 20190703
  2. SHIOSOL [Concomitant]
     Active Substance: GOLD SODIUM THIOMALATE
     Dosage: UNK
     Route: 030
  3. EVENITY [Suspect]
     Active Substance: ROMOSOZUMAB-AQQG
     Indication: OSTEOPOROSIS
     Dosage: 210 MILLIGRAM
     Route: 058
     Dates: start: 20190703, end: 20191209

REACTIONS (4)
  - Death [Fatal]
  - Cardiac failure [Unknown]
  - Mitral valve stenosis [Unknown]
  - Hypoparathyroidism [Unknown]

NARRATIVE: CASE EVENT DATE: 201912
